FAERS Safety Report 4948825-8 (Version None)
Quarter: 2006Q1

REPORT INFORMATION
  Report Type: 
  Country: None (occurrence: None)
  Receive Date: 20060321
  Receipt Date: 20060315
  Transmission Date: 20060701
  Serious: Yes (Hospitalization, Other)
  Sender: FDA-Public Use
  Company Number: CA-JNJFOC-20060304082

PATIENT
  Sex: Male

DRUGS (11)
  1. LEVAQUIN [Suspect]
  2. LEVAQUIN [Suspect]
  3. HEPARIN [Concomitant]
     Indication: ANTICOAGULANT THERAPY
  4. OMEPRAZOLE [Concomitant]
     Route: 048
  5. ACETAMINOPHEN [Concomitant]
     Indication: SHOULDER PAIN
  6. NITROGLYCERIN [Concomitant]
     Indication: ANGINA PECTORIS
  7. LORAZEPAM [Concomitant]
  8. SALINE [Concomitant]
  9. SALINE [Concomitant]
  10. SALINE [Concomitant]
  11. SALINE [Concomitant]

REACTIONS (2)
  - DRUG ADMINISTRATION ERROR [None]
  - VISUAL FIELD DEFECT [None]
